FAERS Safety Report 7916100-5 (Version None)
Quarter: 2011Q4

REPORT INFORMATION
  Report Type: 
  Country: None (occurrence: None)
  Receive Date: 20111116
  Receipt Date: 20110907
  Transmission Date: 20120403
  Serious: Yes (Hospitalization)
  Sender: FDA-Public Use
  Company Number: DE-ROCHE-789752

PATIENT
  Sex: Female

DRUGS (13)
  1. PROCARBAZINE HYDROCHLORIDE [Suspect]
     Route: 048
  2. ETOPOSIDE [Suspect]
     Indication: HODGKIN'S DISEASE
     Dosage: LAST DOSE PRIOR TO SAE: 07 JULY 2011.
     Route: 042
  3. MABTHERA [Suspect]
     Indication: HODGKIN'S DISEASE
     Dosage: FORM: INFUSION, LAST DOSE PRIOR TO SAE: 05 JULY 2011.
     Route: 042
  4. DOXORUBICIN HCL [Suspect]
     Route: 042
  5. CYCLOPHOSPHAMIDE [Suspect]
     Indication: HODGKIN'S DISEASE
     Dosage: LAST DOSE PRIOR TO SAE: 05 JULY 2011.
     Route: 042
  6. PREDNISONE TAB [Suspect]
     Indication: HODGKIN'S DISEASE
     Dosage: LAST DOSE PRIOR TO SAE: 12 JULY 2011.
     Route: 048
  7. MABTHERA [Suspect]
     Dosage: LAST DOSE PRIOR TO SAE: 29 JUL 2011
     Route: 042
  8. BLEOMYCIN SULFATE [Suspect]
     Route: 042
  9. PROCARBAZINE HYDROCHLORIDE [Suspect]
     Indication: HODGKIN'S DISEASE
     Dosage: LAST DOSE PRIOR TO SAE: JULY 2011.
     Route: 048
  10. DOXORUBICIN HCL [Suspect]
     Indication: HODGKIN'S DISEASE
     Dosage: FORM: INFUSION, LAST DOSE PRIOR TO SAE: 05 JULY 2011.
     Route: 042
  11. BLEOMYCIN SULFATE [Suspect]
     Indication: HODGKIN'S DISEASE
     Dosage: TEMPORARILY INTERRUPTED
     Route: 042
  12. PREDNISONE TAB [Suspect]
     Dosage: LAST DOSE PRIOR TO SAE: 11 AUG 2011
     Route: 048
  13. ETOPOSIDE [Suspect]
     Dosage: LAST DOSE PRIOR TO SAE: 31 JUL 2011
     Route: 042

REACTIONS (7)
  - SEPSIS [None]
  - CHILLS [None]
  - FEBRILE NEUTROPENIA [None]
  - UROSEPSIS [None]
  - IRON DEFICIENCY ANAEMIA [None]
  - PRESYNCOPE [None]
  - PYREXIA [None]
